FAERS Safety Report 15257693 (Version 8)
Quarter: 2019Q1

REPORT INFORMATION
  Report Type: Report from Study
  Country: US (occurrence: US)
  Receive Date: 20180808
  Receipt Date: 20190325
  Transmission Date: 20190417
  Serious: Yes (Hospitalization)
  Sender: FDA-Public Use
  Company Number: US-ACTELION-A-US2018-177205

PATIENT
  Age: 40 Year
  Sex: Male
  Weight: 85.71 kg

DRUGS (9)
  1. VELETRI [Suspect]
     Active Substance: EPOPROSTENOL
     Dosage: 20.59 NG/KG, PER MIN
     Route: 042
  2. VELETRI [Suspect]
     Active Substance: EPOPROSTENOL
     Indication: PULMONARY HYPERTENSION
     Dosage: 9.42 NG/KG, PER MIN
     Route: 042
  3. ADCIRCA [Concomitant]
     Active Substance: TADALAFIL
  4. VELETRI [Suspect]
     Active Substance: EPOPROSTENOL
     Dosage: 29.8 NG/KG, PER MIN
     Route: 042
  5. VELETRI [Suspect]
     Active Substance: EPOPROSTENOL
     Dosage: 27.9 NG/KG, PER MIN
     Route: 042
  6. OPSUMIT [Suspect]
     Active Substance: MACITENTAN
     Indication: PULMONARY HYPERTENSION
     Dosage: 10 MG, QD
     Route: 048
  7. ELIQUIS [Concomitant]
     Active Substance: APIXABAN
  8. DILTIAZEM. [Concomitant]
     Active Substance: DILTIAZEM
  9. VELETRI [Suspect]
     Active Substance: EPOPROSTENOL
     Dosage: 30.5 NG/KG, PER MIN
     Route: 042

REACTIONS (11)
  - Diarrhoea [Unknown]
  - Flushing [Unknown]
  - Pulmonary arterial hypertension [Unknown]
  - Neuralgia [Unknown]
  - Unevaluable event [Unknown]
  - Influenza like illness [Unknown]
  - Dyspnoea [Unknown]
  - Fatigue [Unknown]
  - Pain in jaw [Unknown]
  - Nausea [Unknown]
  - Headache [Unknown]

NARRATIVE: CASE EVENT DATE: 201807
